FAERS Safety Report 21192651 (Version 1)
Quarter: 2022Q3

REPORT INFORMATION
  Report Type: Spontaneous
  Country: US (occurrence: US)
  Receive Date: 20220810
  Receipt Date: 20220810
  Transmission Date: 20221026
  Serious: No
  Sender: FDA-Public Use
  Company Number: US-GLAXOSMITHKLINE-USCH2022027537

PATIENT
  Sex: Female

DRUGS (1)
  1. ADVIL LIQUI-GELS [Suspect]
     Active Substance: IBUPROFEN
     Indication: Pain
     Dosage: UNK

REACTIONS (4)
  - Movement disorder [Not Recovered/Not Resolved]
  - Musculoskeletal discomfort [Unknown]
  - Gait disturbance [Unknown]
  - Muscle discomfort [Unknown]

NARRATIVE: CASE EVENT DATE: 20220701
